FAERS Safety Report 21927266 (Version 2)
Quarter: 2023Q4

REPORT INFORMATION
  Report Type: Report from Study
  Country: JP (occurrence: JP)
  Receive Date: 20230130
  Receipt Date: 20231211
  Transmission Date: 20240110
  Serious: Yes (Other)
  Sender: FDA-Public Use
  Company Number: JP-PFIZER INC-PV202200084035

PATIENT
  Age: 16 Month
  Sex: Male
  Weight: 7.4 kg

DRUGS (7)
  1. SIROLIMUS [Suspect]
     Active Substance: SIROLIMUS
     Indication: Lymphatic malformation
     Dosage: 0.1 MG, 1X/DAY
     Route: 048
     Dates: start: 20220502, end: 20220529
  2. SIROLIMUS [Suspect]
     Active Substance: SIROLIMUS
     Dosage: 0.2 MG, 1X/DAY
     Route: 048
     Dates: start: 20220530, end: 20220626
  3. SIROLIMUS [Suspect]
     Active Substance: SIROLIMUS
     Dosage: 0.4 MG, 1X/DAY
     Route: 048
     Dates: start: 20220627, end: 20220724
  4. SIROLIMUS [Suspect]
     Active Substance: SIROLIMUS
     Dosage: 0.8 MG, 1X/DAY
     Route: 048
     Dates: start: 20220725, end: 20220920
  5. SIROLIMUS [Suspect]
     Active Substance: SIROLIMUS
     Dosage: 1 MG, 1X/DAY
     Route: 048
     Dates: start: 20220921, end: 20221016
  6. SIROLIMUS [Suspect]
     Active Substance: SIROLIMUS
     Dosage: 1.2 MG, 1X/DAY
     Route: 048
     Dates: start: 20221017
  7. FERRIC PYROPHOSPHATE [Concomitant]
     Active Substance: FERRIC PYROPHOSPHATE
     Indication: Anaemia
     Dosage: 5 ML, 1X/DAY
     Route: 065

REACTIONS (2)
  - Pneumonia [Recovered/Resolved]
  - Hypogammaglobulinaemia [Recovered/Resolved]

NARRATIVE: CASE EVENT DATE: 20221003
